FAERS Safety Report 5616585-3 (Version None)
Quarter: 2008Q1

REPORT INFORMATION
  Report Type: 
  Country: None (occurrence: None)
  Receive Date: 20080207
  Receipt Date: 20070817
  Transmission Date: 20080703
  Serious: No
  Sender: FDA-Public Use
  Company Number: A0671294A

PATIENT
  Age: 52 Year
  Sex: Male

DRUGS (2)
  1. PAXIL CR [Suspect]
     Indication: ANXIETY DISORDER
     Dosage: 12.5MG PER DAY
     Route: 048
  2. PRAVACHOL [Concomitant]

REACTIONS (3)
  - CHILLS [None]
  - INSOMNIA [None]
  - PAIN IN EXTREMITY [None]
